FAERS Safety Report 14678026 (Version 1)
Quarter: 2018Q1

REPORT INFORMATION
  Report Type: Spontaneous
  Country: US (occurrence: US)
  Receive Date: 20180326
  Receipt Date: 20180326
  Transmission Date: 20180509
  Serious: No
  Sender: FDA-Public Use
  Company Number: US-TEIKOKU PHARMA USA-TPU2018-00066

PATIENT
  Age: 63 Year
  Sex: Female
  Weight: 72.64 kg

DRUGS (2)
  1. LIDODERM [Suspect]
     Active Substance: LIDOCAINE
     Indication: MUSCULOSKELETAL PAIN
     Dosage: ONE PATCH APPLIED TO RIGHT BUTTOCK, SECOND PATCH APPLIED TO RIGHT THIGH, AND SOMETIMES APPLIES THIRD
     Route: 061
     Dates: start: 2013
  2. LIDODERM [Suspect]
     Active Substance: LIDOCAINE
     Indication: MUSCLE SPASMS
     Dosage: ONE PATCH APPLIED TO RIGHT BUTTOCK, SECOND PATCH APPLIED TO RIGHT THIGH, AND SOMETIMES APPLIES THIRD
     Route: 061
     Dates: start: 201711

REACTIONS (2)
  - Expired product administered [Not Recovered/Not Resolved]
  - Intervertebral disc protrusion [Not Recovered/Not Resolved]

NARRATIVE: CASE EVENT DATE: 20180202
